FAERS Safety Report 24713650 (Version 1)
Quarter: 2024Q4

REPORT INFORMATION
  Report Type: Spontaneous
  Country: US (occurrence: US)
  Receive Date: 20241209
  Receipt Date: 20241209
  Transmission Date: 20250115
  Serious: No
  Sender: REGENERON
  Company Number: US-REGENERON PHARMACEUTICALS, INC.-2024-043538

PATIENT
  Sex: Male

DRUGS (3)
  1. EYLEA [Suspect]
     Active Substance: AFLIBERCEPT
     Indication: Myopic chorioretinal degeneration
     Dosage: 2 MG, EVERY 4 WEEKS, FORMULATION: UNKNOWN
     Dates: start: 202302, end: 2023
  2. EYLEA [Suspect]
     Active Substance: AFLIBERCEPT
     Indication: Neovascular age-related macular degeneration
     Dosage: 2 MG, EVERY 5 WEEKS, FORMULATION: UNKNOWN
     Dates: start: 202306, end: 2023
  3. EYLEA [Suspect]
     Active Substance: AFLIBERCEPT
     Dosage: 2 MG, EVERY 4 WEEKS, FORMULATION: UNKNOWN
     Dates: start: 2023

REACTIONS (4)
  - Photopsia [Unknown]
  - Vision blurred [Unknown]
  - Vitreous floaters [Unknown]
  - Off label use [Not Recovered/Not Resolved]

NARRATIVE: CASE EVENT DATE: 20230201
